FAERS Safety Report 5373676-2 (Version None)
Quarter: 2007Q2

REPORT INFORMATION
  Report Type: 
  Country: None (occurrence: None)
  Receive Date: 20070628
  Receipt Date: 20070625
  Transmission Date: 20071010
  Serious: Yes (Life-Threatening)
  Sender: FDA-Public Use
  Company Number: JP-ASTRAZENECA-2007AP03804

PATIENT
  Age: 80 Year
  Sex: Female

DRUGS (4)
  1. IRESSA [Suspect]
     Indication: NON-SMALL CELL LUNG CANCER
     Route: 048
     Dates: start: 20070411, end: 20070622
  2. STOMACHICS [Concomitant]
  3. DIGESTIVES [Concomitant]
  4. CYANOCOBALAMIN [Concomitant]

REACTIONS (1)
  - PEMPHIGUS [None]
